FAERS Safety Report 21192753 (Version 2)
Quarter: 2022Q3

REPORT INFORMATION
  Report Type: Report from Study
  Country: US (occurrence: US)
  Receive Date: 20220810
  Receipt Date: 20220825
  Transmission Date: 20221026
  Serious: Yes (Hospitalization)
  Sender: FDA-Public Use
  Company Number: US-ABBVIE-22K-163-4496007-00

PATIENT
  Sex: Male

DRUGS (3)
  1. HUMIRA [Suspect]
     Active Substance: ADALIMUMAB
     Indication: Colitis ulcerative
     Route: 058
     Dates: start: 202202
  2. PREDNISONE [Concomitant]
     Active Substance: PREDNISONE
     Indication: Blood pressure measurement
  3. MIDODRINE [Concomitant]
     Active Substance: MIDODRINE
     Indication: Blood pressure measurement

REACTIONS (5)
  - Food poisoning [Recovered/Resolved]
  - Mobility decreased [Unknown]
  - General physical health deterioration [Unknown]
  - Weight decreased [Not Recovered/Not Resolved]
  - Wrong technique in product usage process [Unknown]

NARRATIVE: CASE EVENT DATE: 20220101
